FAERS Safety Report 23428395 (Version 1)
Quarter: 2024Q1

REPORT INFORMATION
  Report Type: Spontaneous
  Country: DE (occurrence: DE)
  Receive Date: 20240122
  Receipt Date: 20240122
  Transmission Date: 20240410
  Serious: Yes (Other)
  Sender: FDA-Public Use
  Company Number: DE-AMGEN-DEUSP2024008824

PATIENT
  Age: 73 Year
  Sex: Female

DRUGS (2)
  1. PROLIA [Suspect]
     Active Substance: DENOSUMAB
     Indication: Product used for unknown indication
     Dosage: UNK
     Route: 065
  2. CORTISONE [Concomitant]
     Active Substance: CORTISONE
     Dosage: UNK
     Route: 065

REACTIONS (8)
  - Immunosuppression [Unknown]
  - Joint prosthesis user [Unknown]
  - Renal failure [Unknown]
  - Erysipelas [Unknown]
  - Mucosal disorder [Unknown]
  - Tooth disorder [Unknown]
  - Aphthous ulcer [Recovered/Resolved]
  - Rheumatic disorder [Unknown]

NARRATIVE: CASE EVENT DATE: 20230101
